FAERS Safety Report 19359625 (Version 1)
Quarter: 2021Q2

REPORT INFORMATION
  Report Type: Spontaneous
  Country: US (occurrence: US)
  Receive Date: 20210601
  Receipt Date: 20210601
  Transmission Date: 20210717
  Serious: Yes (Hospitalization)
  Sender: FDA-Public Use
  Company Number: US-STRIDES ARCOLAB LIMITED-2021SP005994

PATIENT
  Age: 48 Year
  Sex: Female

DRUGS (11)
  1. ELETRIPTAN. [Suspect]
     Active Substance: ELETRIPTAN
     Indication: PRODUCT USED FOR UNKNOWN INDICATION
     Dosage: 40 MILLIGRAM; FREQ UNK
     Route: 065
  2. ELETRIPTAN. [Suspect]
     Active Substance: ELETRIPTAN
     Dosage: UNK
     Route: 065
  3. FLUOXETINE [Suspect]
     Active Substance: FLUOXETINE HYDROCHLORIDE
     Indication: PRODUCT USED FOR UNKNOWN INDICATION
     Dosage: 20 MILLIGRAM; FREQ UNK
     Route: 065
  4. AMPHETAMINE [Suspect]
     Active Substance: AMPHETAMINE
     Indication: PRODUCT USED FOR UNKNOWN INDICATION
     Dosage: 30 MILLIGRAM; FREQ UNK
     Route: 065
  5. DEXTROAMPHETAMINE. [Suspect]
     Active Substance: DEXTROAMPHETAMINE
     Indication: PRODUCT USED FOR UNKNOWN INDICATION
     Dosage: 30 MILLIGRAM; FREQ UNK
     Route: 065
  6. HYDROCHLOROTHIAZIDE. [Suspect]
     Active Substance: HYDROCHLOROTHIAZIDE
     Indication: PRODUCT USED FOR UNKNOWN INDICATION
     Dosage: 12.5 MILLIGRAM; FREQ UNK
     Route: 065
  7. METHYLPHENIDATE. [Suspect]
     Active Substance: METHYLPHENIDATE
     Dosage: UNK
     Route: 065
  8. DEXTROAMPHETAMINE. [Suspect]
     Active Substance: DEXTROAMPHETAMINE
     Dosage: UNK
     Route: 065
  9. TOPIRAMATE. [Suspect]
     Active Substance: TOPIRAMATE
     Indication: PRODUCT USED FOR UNKNOWN INDICATION
     Dosage: 100 MILLIGRAM; FREQ UNK
     Route: 065
  10. METHYLPHENIDATE. [Suspect]
     Active Substance: METHYLPHENIDATE
     Indication: PRODUCT USED FOR UNKNOWN INDICATION
     Dosage: 10 MILLIGRAM; FREQ UNK
     Route: 065
  11. METHYLPHENIDATE. [Suspect]
     Active Substance: METHYLPHENIDATE
     Dosage: UNK, INCREASING THE FREQUENCY
     Route: 065

REACTIONS (2)
  - Renal artery dissection [Not Recovered/Not Resolved]
  - Renal infarct [Not Recovered/Not Resolved]
